FAERS Safety Report 25602816 (Version 1)
Quarter: 2025Q3

REPORT INFORMATION
  Report Type: Spontaneous
  Country: US (occurrence: US)
  Receive Date: 20250724
  Receipt Date: 20250724
  Transmission Date: 20251021
  Serious: Yes (Life-Threatening, Other)
  Sender: SAGE
  Company Number: US-SAGEPROD-000009

PATIENT
  Age: 73 Year
  Sex: Female

DRUGS (2)
  1. HIBICLENS [Concomitant]
     Active Substance: CHLORHEXIDINE GLUCONATE
  2. CHLORHEXIDINE GLUCONATE [Suspect]
     Active Substance: CHLORHEXIDINE GLUCONATE
     Indication: Preoperative care
     Route: 061

REACTIONS (3)
  - Loss of consciousness [Recovered/Resolved]
  - Asthma [Recovered/Resolved]
  - Dyspnoea [Recovered/Resolved]

NARRATIVE: CASE EVENT DATE: 20250616
